FAERS Safety Report 5134527-4 (Version None)
Quarter: 2006Q4

REPORT INFORMATION
  Report Type: 
  Country: None (occurrence: None)
  Receive Date: 20061025
  Receipt Date: 20061009
  Transmission Date: 20070319
  Serious: Yes (Hospitalization)
  Sender: FDA-Public Use
  Company Number: AT-BRISTOL-MYERS SQUIBB COMPANY-13535125

PATIENT
  Age: 36 Year

DRUGS (7)
  1. ABILIFY [Suspect]
     Indication: SCHIZOPHRENIA
     Dates: start: 20060712, end: 20060903
  2. SEROQUEL [Suspect]
     Indication: SCHIZOPHRENIA
     Dosage: DAILY DOSE RANGED FROM 75-1200 MG
     Dates: start: 20060906
  3. HALDOL [Suspect]
     Indication: SCHIZOPHRENIA
     Dates: start: 20060811, end: 20060913
  4. LEPONEX [Suspect]
     Indication: SCHIZOPHRENIA
     Dosage: ADDITIONAL DOSE FOR CLOZAPINE 100MG
     Dates: start: 19940101, end: 20060913
  5. OXAZEPAM [Concomitant]
  6. DOMINAL [Concomitant]
  7. LOVENOX [Concomitant]

REACTIONS (3)
  - ACUTE PSYCHOSIS [None]
  - DRUG INTERACTION [None]
  - HEPATIC ENZYME INCREASED [None]
